FAERS Safety Report 5052811-X (Version None)
Quarter: 2006Q3

REPORT INFORMATION
  Report Type: 
  Country: None (occurrence: None)
  Receive Date: 20060717
  Receipt Date: 20060706
  Transmission Date: 20061208
  Serious: Yes (Hospitalization)
  Sender: FDA-Public Use
  Company Number: 2006AC01247

PATIENT
  Age: 17523 Day
  Sex: Male

DRUGS (4)
  1. RHINOCORT [Suspect]
     Indication: EAR INFECTION
     Route: 045
     Dates: start: 20060628, end: 20060629
  2. LIPITOR [Concomitant]
  3. LIPITOR [Concomitant]
     Dosage: DOSE INCREASED FROM 10 MG TO 20 MG ON UNKNOWN DATE
  4. COVERSYL [Concomitant]

REACTIONS (3)
  - CHEST PAIN [None]
  - DRUG INTERACTION [None]
  - PALPITATIONS [None]
